FAERS Safety Report 9283764 (Version 2)
Quarter: 2013Q3

REPORT INFORMATION
  Report Type: Spontaneous
  Country: US (occurrence: US)
  Receive Date: 20130510
  Receipt Date: 20130829
  Transmission Date: 20140515
  Serious: Yes (Hospitalization, Other)
  Sender: FDA-Public Use
  Company Number: US-BAYER-2013-057654

PATIENT
  Age: 30 Year
  Sex: Female

DRUGS (7)
  1. YAZ [Suspect]
     Dosage: UNK
     Dates: start: 2004, end: 2005
  2. YASMIN [Suspect]
     Dosage: UNK
     Dates: start: 2004, end: 2005
  3. OCELLA [Suspect]
     Dosage: UNK
     Dates: start: 2004, end: 2005
  4. MOTRIN [Concomitant]
  5. LEXAPRO [Concomitant]
     Indication: POSTPARTUM DEPRESSION
  6. VICODIN [Concomitant]
  7. TORADOL [Concomitant]

REACTIONS (10)
  - Pulmonary embolism [None]
  - Pulmonary embolism [None]
  - Deep vein thrombosis [None]
  - Pain [None]
  - Abdominal pain [None]
  - Injury [None]
  - General physical health deterioration [None]
  - Anxiety [None]
  - Pain [None]
  - Emotional distress [None]
